FAERS Safety Report 16798748 (Version 2)
Quarter: 2019Q4

REPORT INFORMATION
  Report Type: Spontaneous
  Country: US (occurrence: US)
  Receive Date: 20190912
  Receipt Date: 20191230
  Transmission Date: 20200122
  Serious: Yes (Other)
  Sender: FDA-Public Use
  Company Number: US-ABBVIE-19K-163-2916881-00

PATIENT
  Age: 64 Year
  Sex: Female
  Weight: 99.88 kg

DRUGS (3)
  1. ZOLOFT [Concomitant]
     Active Substance: SERTRALINE HYDROCHLORIDE
     Indication: DEPRESSION
  2. HUMIRA [Suspect]
     Active Substance: ADALIMUMAB
     Indication: RHEUMATOID ARTHRITIS
     Route: 058
     Dates: start: 2017, end: 20190614
  3. CLONAZEPAM. [Concomitant]
     Active Substance: CLONAZEPAM
     Indication: ANXIETY

REACTIONS (5)
  - Anxiety [Unknown]
  - Rash [Unknown]
  - Pain [Unknown]
  - Neoplasm malignant [Not Recovered/Not Resolved]
  - Stress [Unknown]

NARRATIVE: CASE EVENT DATE: 20190805
